FAERS Safety Report 4861650-1 (Version None)
Quarter: 2005Q4

REPORT INFORMATION
  Report Type: 
  Country: None (occurrence: None)
  Receive Date: 20051130
  Receipt Date: 20050316
  Transmission Date: 20060501
  Serious: Yes (Other)
  Sender: FDA-Public Use
  Company Number: 200510162BWH

PATIENT
  Age: 43 Year
  Sex: Male
  Weight: 90.7194 kg

DRUGS (13)
  1. CIPRO [Suspect]
     Indication: UPPER RESPIRATORY TRACT INFECTION
     Dosage: 500 MG, QD, ORAL
     Route: 048
     Dates: start: 20041220, end: 20041221
  2. CIPRO [Suspect]
     Indication: UPPER RESPIRATORY TRACT INFECTION
     Dosage: 500 MG, QD, ORAL
     Route: 048
     Dates: start: 20050102
  3. EPIVIR [Concomitant]
  4. VIREAD [Concomitant]
  5. ZERIT [Concomitant]
  6. NORVIR [Concomitant]
  7. REYATAZ [Concomitant]
  8. VALTREX [Concomitant]
  9. BACTRIM DCS [Concomitant]
  10. ATIVAN [Concomitant]
  11. IBUPRFEN [Concomitant]
  12. RANITIDINE HCL [Concomitant]
  13. VITAMINS NOS [Concomitant]

REACTIONS (10)
  - ARTHRALGIA [None]
  - DIFFICULTY IN WALKING [None]
  - DYSSTASIA [None]
  - HYPOAESTHESIA [None]
  - MALAISE [None]
  - MYALGIA [None]
  - PAIN [None]
  - PRURITUS [None]
  - PYREXIA [None]
  - VOMITING [None]
